FAERS Safety Report 4891640-4 (Version None)
Quarter: 2005Q4

REPORT INFORMATION
  Report Type: 
  Country: None (occurrence: None)
  Receive Date: 20051220
  Receipt Date: 20050922
  Transmission Date: 20060501
  Serious: Yes (Other)
  Sender: FDA-Public Use
  Company Number: 418844

PATIENT
  Age: 72 Year
  Sex: Female
  Weight: 77.1 kg

DRUGS (6)
  1. BONIVA [Suspect]
     Indication: OSTEOPOROSIS
     Dosage: 150 MG ORAL
     Route: 048
     Dates: start: 20050815
  2. PRILOSEC [Concomitant]
  3. KLONOPIN [Concomitant]
  4. NAPROXEN [Concomitant]
  5. 1 CONCOMITANT DRUG (GENERIC UNKNOWN) [Concomitant]
  6. CLIMARA [Concomitant]

REACTIONS (3)
  - CHILLS [None]
  - HEADACHE [None]
  - PAIN [None]
